FAERS Safety Report 6409453-0 (Version None)
Quarter: 2009Q4

REPORT INFORMATION
  Report Type: 
  Country: None (occurrence: None)
  Receive Date: 20091019
  Receipt Date: 20091006
  Transmission Date: 20100525
  Serious: Yes (Hospitalization)
  Sender: FDA-Public Use
  Company Number: 1-20270400

PATIENT
  Age: 33 Year
  Sex: Female
  Weight: 83.9154 kg

DRUGS (3)
  1. LAMOTRIGINE       TABLETS 200 MG [Suspect]
     Indication: AFFECTIVE DISORDER
     Dosage: 200 MG ONCE DAILY, ORAL
     Route: 048
     Dates: start: 20081101, end: 20090901
  2. LAMOTRIGINE            200 MG TABS (MANUFACTURER UNKNOWN) [Suspect]
     Indication: AFFECTIVE DISORDER
     Dosage: 200 MG ONCE DAILY, ORAL
     Route: 048
     Dates: start: 20081101, end: 20090901
  3. FLUOXETINE HCL [Concomitant]

REACTIONS (18)
  - ABDOMINAL PAIN [None]
  - ABNORMAL BEHAVIOUR [None]
  - BACK PAIN [None]
  - BURNING SENSATION [None]
  - CONFUSIONAL STATE [None]
  - DIZZINESS [None]
  - DRY MOUTH [None]
  - INSOMNIA [None]
  - MEMORY IMPAIRMENT [None]
  - MOOD ALTERED [None]
  - NERVOUSNESS [None]
  - OCULAR HYPERAEMIA [None]
  - PARANOIA [None]
  - PRODUCT SUBSTITUTION ISSUE [None]
  - RASH [None]
  - TREMOR [None]
  - VISION BLURRED [None]
  - VISUAL IMPAIRMENT [None]
